FAERS Safety Report 17874414 (Version 4)
Quarter: 2020Q3

REPORT INFORMATION
  Report Type: Spontaneous
  Country: CO (occurrence: CO)
  Receive Date: 20200609
  Receipt Date: 20200715
  Transmission Date: 20201103
  Serious: Yes (Other)
  Sender: FDA-Public Use
  Company Number: CO-US-PROVELL PHARMACEUTICALS LLC-9167309

PATIENT
  Age: 63 Year
  Sex: Female

DRUGS (4)
  1. EUTIROX [Suspect]
     Active Substance: LEVOTHYROXINE SODIUM
     Indication: POST PROCEDURAL HYPOTHYROIDISM
     Dosage: OF
     Route: 002
  2. EUTIROX [Suspect]
     Active Substance: LEVOTHYROXINE SODIUM
     Dosage: NF
     Route: 002
     Dates: start: 20200517, end: 20200531
  3. EUTIROX [Suspect]
     Active Substance: LEVOTHYROXINE SODIUM
     Dosage: OF
     Route: 048
     Dates: start: 2020
  4. ASPIRIN. [Concomitant]
     Active Substance: ASPIRIN
     Indication: PRODUCT USED FOR UNKNOWN INDICATION
     Route: 048

REACTIONS (3)
  - Dysgeusia [Recovered/Resolved]
  - Incorrect route of product administration [Recovered/Resolved]
  - Hyperchlorhydria [Not Recovered/Not Resolved]

NARRATIVE: CASE EVENT DATE: 20200517
